FAERS Safety Report 12623428 (Version 1)
Quarter: 2016Q3

REPORT INFORMATION
  Report Type: Spontaneous
  Country: US (occurrence: US)
  Receive Date: 20160804
  Receipt Date: 20160804
  Transmission Date: 20161109
  Serious: Yes (Other)
  Sender: FDA-Public Use
  Company Number: US-INDIVIOR LIMITED-INDV-092899-2016

PATIENT
  Age: 8 Month
  Sex: Male

DRUGS (1)
  1. BUPRENORPHINE. [Suspect]
     Active Substance: BUPRENORPHINE
     Indication: INSOMNIA
     Dosage: UNK
     Route: 048
     Dates: start: 201511, end: 20160728

REACTIONS (3)
  - Somnolence [Recovered/Resolved]
  - Incorrect route of drug administration [Recovered/Resolved]
  - Drug administered to patient of inappropriate age [Recovered/Resolved]

NARRATIVE: CASE EVENT DATE: 201511
